FAERS Safety Report 8179133-2 (Version None)
Quarter: 2012Q1

REPORT INFORMATION
  Report Type: 
  Country: None (occurrence: None)
  Receive Date: 20120302
  Receipt Date: 20120227
  Transmission Date: 20120608
  Serious: Yes (Other)
  Sender: FDA-Public Use
  Company Number: US-PFIZER INC-2012052710

PATIENT
  Sex: Female

DRUGS (2)
  1. CELEBREX [Interacting]
     Indication: ARTHRITIS
  2. CELEBREX [Suspect]
     Indication: PAIN
     Dosage: UNK

REACTIONS (3)
  - DRUG INTERACTION [None]
  - GASTROOESOPHAGEAL REFLUX DISEASE [None]
  - DYSPNOEA [None]
